FAERS Safety Report 9526522 (Version 1)
Quarter: 2013Q3

REPORT INFORMATION
  Report Type: Spontaneous
  Country: JP (occurrence: JP)
  Receive Date: 20130916
  Receipt Date: 20130916
  Transmission Date: 20140515
  Serious: Yes (Hospitalization)
  Sender: FDA-Public Use
  Company Number: JP-TEVA-430980ISR

PATIENT
  Age: 80 Year
  Sex: Female

DRUGS (1)
  1. PREDNISOLONE [Suspect]
     Indication: MICROSCOPIC POLYANGIITIS
     Dosage: 15 MILLIGRAM DAILY;
     Route: 048
     Dates: start: 2009

REACTIONS (1)
  - Disseminated tuberculosis [Recovering/Resolving]
